FAERS Safety Report 7426871-2 (Version None)
Quarter: 2011Q2

REPORT INFORMATION
  Report Type: 
  Country: None (occurrence: None)
  Receive Date: 20110415
  Receipt Date: 20110415
  Transmission Date: 20111010
  Serious: Yes (Other)
  Sender: FDA-Public Use
  Company Number: None

PATIENT
  Age: 77 Year
  Sex: Male
  Weight: 113 kg

DRUGS (1)
  1. FILGRASTIM [Suspect]
     Dosage: 1 MIL SQ
     Route: 058
     Dates: start: 20100822, end: 20110103

REACTIONS (1)
  - DEEP VEIN THROMBOSIS [None]
